FAERS Safety Report 9504074 (Version 1)
Quarter: 2013Q3

REPORT INFORMATION
  Report Type: Spontaneous
  Country: US (occurrence: US)
  Receive Date: 20130906
  Receipt Date: 20130906
  Transmission Date: 20140515
  Serious: Yes (Hospitalization)
  Sender: FDA-Public Use
  Company Number: US-UCBSA-096413

PATIENT
  Sex: 0

DRUGS (4)
  1. CIMZIA [Suspect]
  2. METHOTRAX [Concomitant]
  3. CORTIZONE [Concomitant]
  4. CORTIZONE [Concomitant]
     Dosage: PILLS

REACTIONS (2)
  - Hospitalisation [Unknown]
  - Fall [Unknown]
